FAERS Safety Report 21696761 (Version 2)
Quarter: 2022Q4

REPORT INFORMATION
  Report Type: Report from Study
  Country: US (occurrence: US)
  Receive Date: 20221207
  Receipt Date: 20221221
  Transmission Date: 20230113
  Serious: Yes (Other)
  Sender: FDA-Public Use
  Company Number: US-JNJFOC-20221200004

PATIENT

DRUGS (1)
  1. GUSELKUMAB [Suspect]
     Active Substance: GUSELKUMAB
     Indication: Psoriasis
     Route: 065
     Dates: end: 202208

REACTIONS (3)
  - Sepsis [Recovered/Resolved]
  - Pharyngitis streptococcal [Recovered/Resolved]
  - Psoriasis [Not Recovered/Not Resolved]
